FAERS Safety Report 9835827 (Version 1)
Quarter: 2014Q1

REPORT INFORMATION
  Report Type: Spontaneous
  Country: US (occurrence: US)
  Receive Date: 20140122
  Receipt Date: 20140122
  Transmission Date: 20141002
  Serious: Yes (Hospitalization)
  Sender: FDA-Public Use
  Company Number: US-GILEAD-2011-0043867

PATIENT
  Age: 39 Year
  Sex: Male

DRUGS (1)
  1. COMPLERA [Suspect]
     Indication: HIV INFECTION
     Dates: start: 20110908

REACTIONS (2)
  - Suicidal ideation [Unknown]
  - Depression [Unknown]
